FAERS Safety Report 22094845 (Version 1)
Quarter: 2023Q1

REPORT INFORMATION
  Report Type: Spontaneous
  Country: US (occurrence: US)
  Receive Date: 20230314
  Receipt Date: 20230314
  Transmission Date: 20230418
  Serious: Yes (Hospitalization, Other)
  Sender: FDA-Public Use
  Company Number: US-ELI_LILLY_AND_COMPANY-US202303001914

PATIENT
  Sex: Female

DRUGS (1)
  1. TRULICITY [Suspect]
     Active Substance: DULAGLUTIDE
     Indication: Diabetes mellitus
     Dosage: 0.75 MG, UNKNOWN
     Route: 065
     Dates: start: 201908, end: 20230113

REACTIONS (11)
  - Diabetic ketoacidosis [Not Recovered/Not Resolved]
  - Myocardial infarction [Unknown]
  - Weight decreased [Not Recovered/Not Resolved]
  - Dizziness [Not Recovered/Not Resolved]
  - Constipation [Unknown]
  - Dizziness [Not Recovered/Not Resolved]
  - Illness [Unknown]
  - Nausea [Unknown]
  - Decreased appetite [Not Recovered/Not Resolved]
  - Diarrhoea [Unknown]
  - Asthenia [Unknown]

NARRATIVE: CASE EVENT DATE: 20190101
